FAERS Safety Report 11934811 (Version 1)
Quarter: 2016Q1

REPORT INFORMATION
  Report Type: Spontaneous
  Country: US (occurrence: US)
  Receive Date: 20160121
  Receipt Date: 20160121
  Transmission Date: 20160526
  Serious: Yes (Other)
  Sender: FDA-Public Use
  Company Number: US-ENDO PHARMACEUTICALS INC.-2015-003597

PATIENT
  Age: 66 Year
  Sex: Female

DRUGS (1)
  1. OPANA ER [Suspect]
     Active Substance: OXYMORPHONE HYDROCHLORIDE
     Indication: PAIN
     Route: 065
     Dates: start: 2015, end: 2015

REACTIONS (1)
  - Respiratory depression [Recovered/Resolved]

NARRATIVE: CASE EVENT DATE: 2015
